FAERS Safety Report 9063933 (Version 1)
Quarter: 2013Q1

REPORT INFORMATION
  Report Type: Report from Study
  Country: US (occurrence: US)
  Receive Date: 20130131
  Receipt Date: 20130131
  Transmission Date: 20140127
  Serious: No
  Sender: FDA-Public Use
  Company Number: US-ABBOTT-12P-163-1009578-00

PATIENT
  Age: 80 Year
  Sex: Male

DRUGS (15)
  1. HUMIRA [Suspect]
     Indication: RHEUMATOID ARTHRITIS
     Route: 058
     Dates: start: 20121108
  2. ACYCLOVIR [Concomitant]
     Indication: PROPHYLAXIS
  3. BUPROPION [Concomitant]
     Indication: DEPRESSION
  4. LOSARTAN [Concomitant]
     Indication: HYPERTENSION
  5. SERTRALINE [Concomitant]
     Indication: DEPRESSION
  6. METHOTREXATE [Concomitant]
     Indication: PRODUCT USED FOR UNKNOWN INDICATION
  7. CLONAZEPAM [Concomitant]
     Indication: PANIC ATTACK
  8. RANITIDINE [Concomitant]
     Indication: GASTROOESOPHAGEAL REFLUX DISEASE
  9. AMLODIPINE [Concomitant]
     Indication: HYPERTENSION
  10. TAMSULOSIN [Concomitant]
     Indication: BENIGN PROSTATIC HYPERPLASIA
  11. SIMVASTATIN [Concomitant]
     Indication: HYPERTENSION
  12. DESMOPRESSIN ACETATE [Concomitant]
     Indication: THIRST
  13. DESMOPRESSIN ACETATE [Concomitant]
     Indication: NOCTURIA
  14. METOPROLOL [Concomitant]
     Indication: HYPERTENSION
  15. FOLIC ACID [Concomitant]
     Indication: PRODUCT USED FOR UNKNOWN INDICATION

REACTIONS (1)
  - Mucosal inflammation [Recovering/Resolving]
